FAERS Safety Report 14055646 (Version 1)
Quarter: 2017Q4

REPORT INFORMATION
  Report Type: Spontaneous
  Country: TR (occurrence: TR)
  Receive Date: 20171006
  Receipt Date: 20171006
  Transmission Date: 20180321
  Serious: Yes (Other)
  Sender: FDA-Public Use
  Company Number: TR-BRISTOL-MYERS SQUIBB COMPANY-BMS-2017-087669

PATIENT
  Age: 16 Year
  Sex: Male

DRUGS (2)
  1. ARIPIPRAZOLE. [Suspect]
     Active Substance: ARIPIPRAZOLE
     Indication: ABNORMAL BEHAVIOUR
     Route: 065
  2. ESCITALOPRAM [Suspect]
     Active Substance: ESCITALOPRAM OXALATE
     Indication: ABNORMAL BEHAVIOUR
     Route: 065

REACTIONS (4)
  - Blood creatine phosphokinase MB increased [Recovered/Resolved]
  - Chest pain [Recovered/Resolved]
  - Troponin T increased [Recovered/Resolved]
  - Product use in unapproved indication [Unknown]
